FAERS Safety Report 9905062 (Version 1)
Quarter: 2013Q2

REPORT INFORMATION
  Report Type: Spontaneous
  Country: US (occurrence: None)
  Receive Date: 20130305
  Receipt Date: 20130305
  Transmission Date: 20140414
  Serious: Yes (Hospitalization)
  Sender: FDA-Public Use
  Company Number: 163-21880-12041903

PATIENT
  Age: 66 Year
  Sex: Male

DRUGS (5)
  1. REVLIMID (LENALIDOMIDE) (10 MILLIGRAM, CAPSULES) [Suspect]
     Indication: PLASMA CELL MYELOMA
     Route: 048
     Dates: start: 20120313
  2. PROCRIT (ERYTHROPOIETIN) (UNKNOWN) [Concomitant]
  3. GEMFIBROZIL (GEMFIBROZIL) (UNKNOWN) [Concomitant]
  4. LISINOPRIL (LISINOPRIL) (UNKNOWN) [Concomitant]
  5. METOPROLOL (METOPROLOL) (UNKNOWN) [Concomitant]

REACTIONS (1)
  - Pneumonia [None]
